FAERS Safety Report 14742709 (Version 2)
Quarter: 2018Q2

REPORT INFORMATION
  Report Type: Spontaneous
  Country: JP (occurrence: JP)
  Receive Date: 20180410
  Receipt Date: 20180420
  Transmission Date: 20180711
  Serious: Yes (Death, Hospitalization)
  Sender: FDA-Public Use
  Company Number: JP-TEVA-2018-JP-879459

PATIENT
  Age: 76 Year
  Sex: Female

DRUGS (5)
  1. FLUOROURACIL. [Suspect]
     Active Substance: FLUOROURACIL
     Dosage: 3000 MG FROM DAY 1 TO 2 CONTINUOUS DOSING
     Route: 065
     Dates: start: 201205
  2. FLUOROURACIL. [Suspect]
     Active Substance: FLUOROURACIL
     Indication: COLON CANCER
     Dosage: 500 MG ON DAY 1
     Route: 050
     Dates: start: 201205
  3. IRINOTECAN (CPT-11) [Suspect]
     Active Substance: IRINOTECAN
     Indication: COLON CANCER
     Dosage: 150 MG
     Route: 065
     Dates: start: 201205
  4. FOLINIC ACID [Suspect]
     Active Substance: LEUCOVORIN
     Indication: COLON CANCER
     Dosage: 250MG ON DAY 1
     Route: 065
     Dates: start: 201205
  5. CETUXIMAB. [Suspect]
     Active Substance: CETUXIMAB
     Indication: COLON CANCER
     Dosage: 320 MG ON DAY 1
     Route: 065
     Dates: start: 201205

REACTIONS (2)
  - Interstitial lung disease [Fatal]
  - Respiratory failure [Fatal]
